FAERS Safety Report 8263018-7 (Version None)
Quarter: 2012Q1

REPORT INFORMATION
  Report Type: 
  Country: None (occurrence: None)
  Receive Date: 20120327
  Receipt Date: 20110414
  Transmission Date: 20120608
  Serious: Yes (Other)
  Sender: FDA-Public Use
  Company Number: PHHY2011US31952

PATIENT
  Age: 65 Year
  Sex: Male
  Weight: 104.3 kg

DRUGS (4)
  1. CITALOPRAM HYDROBROMIDE [Concomitant]
  2. PRAVASTATIN [Concomitant]
  3. GLEEVEC [Suspect]
     Dosage: 1 DF, QD, TAKE MEDICATION WITH MEAL AND A LARGE GLASS OF WATER, ORAL
     Route: 048
  4. ZOLPIDEM [Concomitant]

REACTIONS (6)
  - DEAFNESS [None]
  - AMNESIA [None]
  - ABDOMINAL DISCOMFORT [None]
  - FLATULENCE [None]
  - MEMORY IMPAIRMENT [None]
  - MUSCULOSKELETAL DISCOMFORT [None]
